FAERS Safety Report 14560668 (Version 2)
Quarter: 2018Q1

REPORT INFORMATION
  Report Type: Report from Study
  Country: US (occurrence: US)
  Receive Date: 20180222
  Receipt Date: 20180306
  Transmission Date: 20180509
  Serious: Yes (Hospitalization, Other)
  Sender: FDA-Public Use
  Company Number: US-BRISTOL-MYERS SQUIBB COMPANY-BMS-2018-015856

PATIENT
  Age: 51 Year
  Sex: Male
  Weight: 88 kg

DRUGS (4)
  1. VELIPARIB [Suspect]
     Active Substance: VELIPARIB
     Indication: LYMPHOMA
     Route: 065
  2. VELIPARIB [Suspect]
     Active Substance: VELIPARIB
     Indication: NEOPLASM
     Dosage: 400 MG, UNK
     Route: 048
     Dates: start: 20180205, end: 20180214
  3. NIVOLUMAB [Suspect]
     Active Substance: NIVOLUMAB
     Indication: NEOPLASM
     Dosage: 240 MG, Q2WK
     Route: 042
     Dates: start: 20180212
  4. NIVOLUMAB [Suspect]
     Active Substance: NIVOLUMAB
     Indication: LYMPHOMA
     Route: 065

REACTIONS (4)
  - Anaemia [Unknown]
  - Hypotension [Recovered/Resolved]
  - Dizziness [Recovered/Resolved]
  - Gastric haemorrhage [Recovered/Resolved]

NARRATIVE: CASE EVENT DATE: 20180213
